APPROVED DRUG PRODUCT: DIETHYLPROPION HYDROCHLORIDE
Active Ingredient: DIETHYLPROPION HYDROCHLORIDE
Strength: 25MG
Dosage Form/Route: TABLET;ORAL
Application: A040828 | Product #001
Applicant: EPIC PHARMA LLC
Approved: Nov 5, 2008 | RLD: No | RS: No | Type: DISCN